FAERS Safety Report 8376651-9 (Version None)
Quarter: 2012Q2

REPORT INFORMATION
  Report Type: 
  Country: None (occurrence: None)
  Receive Date: 20120518
  Receipt Date: 20120511
  Transmission Date: 20120825
  Serious: Yes (Hospitalization)
  Sender: FDA-Public Use
  Company Number: TPA2012A02772

PATIENT
  Age: 82 Year
  Sex: Female
  Weight: 85.7298 kg

DRUGS (6)
  1. ASPIRIN [Concomitant]
  2. ATENOLOL [Concomitant]
  3. ACTOS [Suspect]
     Indication: DIABETES MELLITUS
  4. LIPITOR [Suspect]
     Indication: BLOOD CHOLESTEROL INCREASED
     Dosage: 10 MG, 1 IN 1 D, ORAL
     Route: 048
  5. METFORMIN HYDROCHLORIDE [Concomitant]
  6. AMARYL [Concomitant]

REACTIONS (3)
  - WEIGHT INCREASED [None]
  - INFECTION [None]
  - GLYCOSYLATED HAEMOGLOBIN INCREASED [None]
